FAERS Safety Report 9495816 (Version 3)
Quarter: 2014Q2

REPORT INFORMATION
  Report Type: Spontaneous
  Country: IT (occurrence: IT)
  Receive Date: 20130903
  Receipt Date: 20140402
  Transmission Date: 20141212
  Serious: Yes (Hospitalization)
  Sender: FDA-Public Use
  Company Number: IT-VERTEX PHARMACEUTICALS INC-2013-009235

PATIENT
  Age: 59 Year
  Sex: Female
  Weight: 63 kg

DRUGS (4)
  1. INCIVO [Suspect]
     Indication: CHRONIC HEPATITIS C
     Dosage: 750 MG, QD
     Route: 048
     Dates: start: 20130607, end: 20130816
  2. REBETOL [Suspect]
     Indication: CHRONIC HEPATITIS C
     Dosage: 400 MG, QD
     Route: 048
     Dates: start: 20130506, end: 20130816
  3. PEGASYS [Suspect]
     Indication: CHRONIC HEPATITIS C
     Dosage: 180 ?G, QW
     Route: 058
     Dates: start: 20130506, end: 20130812
  4. MODURETIC [Concomitant]
     Indication: HYPERTENSION
     Dosage: 27.5 MG, UNK
     Route: 048
     Dates: start: 20130101, end: 20130816

REACTIONS (3)
  - Hyperpyrexia [Recovered/Resolved]
  - Escherichia bacteraemia [Recovered/Resolved]
  - Pyelonephritis acute [Recovered/Resolved]
